FAERS Safety Report 8652347 (Version 3)
Quarter: 2014Q1

REPORT INFORMATION
  Report Type: Spontaneous
  Country: US (occurrence: US)
  Receive Date: 20120706
  Receipt Date: 20140109
  Transmission Date: 20141002
  Serious: Yes (Hospitalization)
  Sender: FDA-Public Use
  Company Number: US-BAYER-2012-065058

PATIENT
  Age: 21 Year
  Sex: Female
  Weight: 50.79 kg

DRUGS (3)
  1. OCELLA [Suspect]
     Dosage: 1 DF, QD
     Route: 048
     Dates: start: 2009, end: 2011
  2. YASMIN [Suspect]
  3. MULTIVITAMIN [Concomitant]
     Dosage: UNK
     Dates: start: 20100708

REACTIONS (6)
  - Cholelithiasis [None]
  - Cholecystitis chronic [None]
  - Injury [None]
  - Pain [None]
  - Anxiety [None]
  - Anhedonia [None]
